FAERS Safety Report 9740338 (Version 2)
Quarter: 2013Q4

REPORT INFORMATION
  Report Type: Spontaneous
  Country: JP (occurrence: JP)
  Receive Date: 20131209
  Receipt Date: 20131209
  Transmission Date: 20140711
  Serious: Yes (Hospitalization, Other)
  Sender: FDA-Public Use
  Company Number: JP-EISAI INC-E2090-00058-SPO-JP

PATIENT
  Age: 30 Year
  Sex: Female

DRUGS (7)
  1. EXCEGRAN [Suspect]
     Indication: EPILEPSY
     Dosage: 200 MG OR 400 MG OR 800 MG
     Route: 048
     Dates: start: 20060107, end: 20060210
  2. SODIUM VALPROATE [Suspect]
     Indication: PRODUCT USED FOR UNKNOWN INDICATION
     Dosage: UNKNOWN
     Dates: start: 20051227, end: 20060107
  3. LOXONIN [Concomitant]
     Indication: HEADACHE
     Route: 048
     Dates: start: 20051228, end: 20060204
  4. MUCOSTA [Concomitant]
     Indication: GASTRITIS
     Route: 048
     Dates: start: 20051228, end: 20060204
  5. GASTER D [Concomitant]
     Indication: GASTRITIS
     Route: 048
     Dates: start: 20051227, end: 20060204
  6. MYSLEE [Concomitant]
     Indication: INSOMNIA
     Route: 048
     Dates: start: 20060123, end: 20060124
  7. CEREB [Concomitant]
     Route: 048
     Dates: start: 20051227, end: 20060106

REACTIONS (2)
  - Drug reaction with eosinophilia and systemic symptoms [Recovered/Resolved]
  - Stevens-Johnson syndrome [Unknown]
